FAERS Safety Report 8143993-1 (Version None)
Quarter: 2012Q1

REPORT INFORMATION
  Report Type: 
  Country: None (occurrence: None)
  Receive Date: 20120217
  Receipt Date: 20120217
  Transmission Date: 20120608
  Serious: Yes (Disabling, Other)
  Sender: FDA-Public Use
  Company Number: None

PATIENT
  Age: 59 Year
  Sex: Female
  Weight: 74.842 kg

DRUGS (2)
  1. COZAAR [Suspect]
     Indication: NEPHROPATHY
     Dosage: 3 TABS
     Route: 048
     Dates: start: 20111214, end: 20120110
  2. COZAAR [Suspect]
     Indication: HYPERTENSION
     Dosage: 3 TABS
     Route: 048
     Dates: start: 20111214, end: 20120110

REACTIONS (3)
  - CHEST DISCOMFORT [None]
  - PRODUCT SUBSTITUTION ISSUE [None]
  - HEART RATE INCREASED [None]
